FAERS Safety Report 24423061 (Version 1)
Quarter: 2024Q4

REPORT INFORMATION
  Report Type: Spontaneous
  Country: ES (occurrence: ES)
  Receive Date: 20241010
  Receipt Date: 20241010
  Transmission Date: 20250115
  Serious: Yes (Hospitalization)
  Sender: RANBAXY
  Company Number: ES-SUN PHARMACEUTICAL INDUSTRIES LTD-2024RR-472296

PATIENT
  Age: 66 Year
  Sex: Male

DRUGS (5)
  1. ATORVASTATIN [Suspect]
     Active Substance: ATORVASTATIN
     Indication: Prophylaxis
     Dosage: 80 MILLIGRAM, DAILY
     Route: 048
     Dates: start: 20200210, end: 20240624
  2. SEREVENT DISKUS [Concomitant]
     Active Substance: SALMETEROL XINAFOATE
     Indication: Product used for unknown indication
     Dosage: 100 MCG, DAILY
     Route: 055
     Dates: start: 202210
  3. ASPIRIN [Concomitant]
     Active Substance: ASPIRIN
     Indication: Myocardial ischaemia
     Dosage: 100 MILLIGRAM, DAILY
     Route: 048
     Dates: start: 20200203
  4. BISOPROLOL FUMARATE [Concomitant]
     Active Substance: BISOPROLOL FUMARATE
     Indication: Myocardial ischaemia
     Dosage: 2.5 MILLIGRAM, DAILY
     Route: 048
     Dates: start: 20200203
  5. DERMATRANS [Concomitant]
     Indication: Myocardial ischaemia
     Dosage: 5 MILLIGRAM, DAILY
     Route: 062
     Dates: start: 20200303

REACTIONS (3)
  - Rhabdomyolysis [Recovering/Resolving]
  - Hyperbilirubinaemia [Recovering/Resolving]
  - Hepatocellular injury [Recovering/Resolving]

NARRATIVE: CASE EVENT DATE: 20230901
